FAERS Safety Report 10905275 (Version 2)
Quarter: 2015Q3

REPORT INFORMATION
  Report Type: Spontaneous
  Country: US (occurrence: US)
  Receive Date: 20150311
  Receipt Date: 20150806
  Transmission Date: 20151125
  Serious: Yes (Hospitalization)
  Sender: FDA-Public Use
  Company Number: US-BAYER-2015-036270

PATIENT
  Age: 40 Year
  Sex: Female
  Weight: 65.76 kg

DRUGS (3)
  1. MIRENA [Suspect]
     Active Substance: LEVONORGESTREL
     Indication: CONTRACEPTION
     Dosage: 20 MCG/24HR, CONT
     Route: 015
     Dates: start: 20080508, end: 20130424
  2. AMBIEN [Concomitant]
     Active Substance: ZOLPIDEM TARTRATE
     Dosage: 10 MG, ONCE AT BEDTIME
     Route: 048
     Dates: start: 2000
  3. TRAMADOL. [Concomitant]
     Active Substance: TRAMADOL
     Dosage: UNK
     Dates: start: 2000

REACTIONS (6)
  - Device difficult to use [None]
  - Pain [None]
  - Device issue [None]
  - Embedded device [None]
  - Injury [None]
  - Device dislocation [None]

NARRATIVE: CASE EVENT DATE: 20130321
